FAERS Safety Report 4994150-9 (Version None)
Quarter: 2006Q2

REPORT INFORMATION
  Report Type: 
  Country: None (occurrence: None)
  Receive Date: 20060503
  Receipt Date: 20030314
  Transmission Date: 20061013
  Serious: Yes (Death)
  Sender: FDA-Public Use
  Company Number: 03-NIP00324

PATIENT
  Age: 59 Year

DRUGS (1)
  1. NIPENT [Suspect]
     Indication: HAIRY CELL LEUKAEMIA
     Dosage: 4 MG/M^2 (1 X PER 2 WK), INTRAVENOUS
     Route: 042

REACTIONS (2)
  - LUNG NEOPLASM MALIGNANT [None]
  - SQUAMOUS CELL CARCINOMA [None]
